FAERS Safety Report 25762255 (Version 1)
Quarter: 2025Q3

REPORT INFORMATION
  Report Type: Spontaneous
  Country: GB (occurrence: GB)
  Receive Date: 20250904
  Receipt Date: 20250904
  Transmission Date: 20251020
  Serious: Yes (Other)
  Sender: PFIZER
  Company Number: None

PATIENT
  Age: 32 Year
  Sex: Male
  Weight: 90 kg

DRUGS (12)
  1. SULFASALAZINE [Suspect]
     Active Substance: SULFASALAZINE
     Indication: Psoriatic arthropathy
     Dosage: 500 MG, 2X/DAY (MORNING AND NIGHT)
     Dates: start: 20250707, end: 20250721
  2. BECLOMETASONA + SALBUTAMOL [Concomitant]
     Indication: Asthma
  3. ALBUTEROL [Concomitant]
     Active Substance: ALBUTEROL
  4. OMEPRAZOLE [Concomitant]
     Active Substance: OMEPRAZOLE
     Indication: Gastrooesophageal reflux disease
  5. ETORICOXIB [Concomitant]
     Active Substance: ETORICOXIB
     Indication: Psoriatic arthropathy
  6. GABAPENTIN [Concomitant]
     Active Substance: GABAPENTIN
     Indication: Psoriatic arthropathy
  7. METHOTREXATE [Concomitant]
     Active Substance: METHOTREXATE
     Indication: Psoriatic arthropathy
  8. FOLIC ACID [Concomitant]
     Active Substance: FOLIC ACID
  9. MIRTAZAPINE [Concomitant]
     Active Substance: MIRTAZAPINE
     Indication: Seasonal affective disorder
  10. TESTOSTERONE [Concomitant]
     Active Substance: TESTOSTERONE
     Indication: Transgender hormonal therapy
  11. ESTRIOL [Concomitant]
     Active Substance: ESTRIOL
     Indication: Hypertonic bladder
  12. DESOGESTREL [Concomitant]
     Active Substance: DESOGESTREL
     Indication: Contraception

REACTIONS (7)
  - Gastrooesophageal reflux disease [Recovering/Resolving]
  - Condition aggravated [Recovering/Resolving]
  - Chest pain [Unknown]
  - Burning sensation [Unknown]
  - Dyspepsia [Unknown]
  - Abdominal pain upper [Unknown]
  - Dizziness [Unknown]

NARRATIVE: CASE EVENT DATE: 20250717
